FAERS Safety Report 17223554 (Version 2)
Quarter: 2020Q1

REPORT INFORMATION
  Report Type: Report from Study
  Country: ES (occurrence: ES)
  Receive Date: 20200102
  Receipt Date: 20200317
  Transmission Date: 20200409
  Serious: Yes (Other)
  Sender: FDA-Public Use
  Company Number: ES-GLAXOSMITHKLINE-ES2019TSO233062

PATIENT
  Age: 57 Year
  Sex: Female
  Weight: 77 kg

DRUGS (10)
  1. BLINDED DOXORUBICIN [Suspect]
     Active Substance: DOXORUBICIN
     Indication: OVARIAN CANCER
     Dosage: 1200 MG
     Route: 042
     Dates: start: 20190711, end: 20191213
  2. BLINDED NIRAPARIB [Suspect]
     Active Substance: NIRAPARIB
     Indication: OVARIAN CANCER
     Dosage: 1200 MG
     Route: 042
     Dates: start: 20190711, end: 20191213
  3. NIRAPARIB [Suspect]
     Active Substance: NIRAPARIB
     Indication: OVARIAN CANCER
     Dosage: 300 MG, QD
     Dates: end: 20191213
  4. CITALOPRAM [Concomitant]
     Active Substance: CITALOPRAM HYDROBROMIDE
     Indication: DEPRESSION
     Dosage: UNK
     Dates: start: 2018
  5. GEMCITABINE. [Suspect]
     Active Substance: GEMCITABINE
     Indication: OVARIAN CANCER
     Dosage: 1000 MG/M2
     Route: 042
     Dates: start: 20190711
  6. BLINDED PLACEBO [Suspect]
     Active Substance: INVESTIGATIONAL PRODUCT
     Indication: OVARIAN CANCER
     Dosage: 1200 MG
     Route: 042
     Dates: start: 20190711, end: 20191213
  7. BLINDED ATEZOLIZUMAB [Suspect]
     Active Substance: ATEZOLIZUMAB
     Indication: OVARIAN CANCER
     Dosage: 1200 MG
     Route: 042
     Dates: start: 20190711, end: 20191213
  8. CARBOPLATIN. [Suspect]
     Active Substance: CARBOPLATIN
     Indication: OVARIAN CANCER
     Dosage: 4 AUC
     Route: 042
     Dates: start: 20190711
  9. MOVICOL [Concomitant]
     Active Substance: POLYETHYLENE GLYCOL 3350\POTASSIUM CHLORIDE\SODIUM BICARBONATE\SODIUM CHLORIDE
     Indication: CONSTIPATION
     Dosage: UNK
     Dates: start: 20191122
  10. EUTIROX [Concomitant]
     Active Substance: LEVOTHYROXINE SODIUM
     Indication: HYPOTHYROIDISM
     Dosage: 88 UG
     Dates: start: 2015

REACTIONS (1)
  - Nephritis [Recovered/Resolved]

NARRATIVE: CASE EVENT DATE: 20191213
